FAERS Safety Report 9708373 (Version 1)
Quarter: 2013Q4

REPORT INFORMATION
  Report Type: Report from Study
  Country: DE (occurrence: UY)
  Receive Date: 20131125
  Receipt Date: 20131125
  Transmission Date: 20140711
  Serious: Yes (Other)
  Sender: FDA-Public Use
  Company Number: DE-ACTELION-A-US2013-91747

PATIENT
  Age: 52 Year
  Sex: Female

DRUGS (11)
  1. VENTAVIS [Suspect]
     Indication: PRODUCT USED FOR UNKNOWN INDICATION
     Dosage: UNK, Q3HR
     Route: 055
  2. SILDENAFIL [Concomitant]
  3. BOSENTAN [Concomitant]
  4. WARFARIN [Concomitant]
  5. CLEXANE [Concomitant]
     Dosage: 20 MG, UNK
  6. TRAMADOL [Concomitant]
  7. ALPRAZOLAM [Concomitant]
     Dosage: 1 MG, UNK
  8. FUROSEMIDE [Concomitant]
     Dosage: 40 MG, UNK
  9. FLUOXETINE [Concomitant]
     Dosage: 20 UNK, UNK
  10. POTASSIUM [Concomitant]
  11. OMEPRAZOLE [Concomitant]

REACTIONS (2)
  - Tonsillitis streptococcal [Unknown]
  - Oedema peripheral [Unknown]
